FAERS Safety Report 8872753 (Version 3)
Quarter: 2015Q2

REPORT INFORMATION
  Report Type: Report from Study
  Country: FR (occurrence: FR)
  Receive Date: 20121030
  Receipt Date: 20150601
  Transmission Date: 20150821
  Serious: Yes (Other)
  Sender: FDA-Public Use
  Company Number: PHHY2012FR091467

PATIENT
  Age: 14 Year
  Sex: Male
  Weight: 58 kg

DRUGS (5)
  1. ILARIS [Suspect]
     Active Substance: CANAKINUMAB
     Indication: CRYOPYRIN ASSOCIATED PERIODIC SYNDROME
     Dosage: 116 MG, EVERY 8 WEEKS
     Route: 065
     Dates: start: 20121031
  2. ILARIS [Suspect]
     Active Substance: CANAKINUMAB
     Indication: MUCKLE-WELLS SYNDROME
     Dosage: 116 MG, EVERY 8 WEEKS
     Route: 058
     Dates: start: 20100701
  3. ILARIS [Suspect]
     Active Substance: CANAKINUMAB
     Dosage: 116 MG, EVERY 8 WEEKS
     Route: 065
     Dates: start: 20130221
  4. ILARIS [Suspect]
     Active Substance: CANAKINUMAB
     Dosage: 116 MG, EVERY 8 WEEKS
     Route: 065
     Dates: start: 20121226
  5. KINERET [Concomitant]
     Active Substance: ANAKINRA
     Indication: PRODUCT USED FOR UNKNOWN INDICATION
     Route: 065

REACTIONS (6)
  - Alanine aminotransferase increased [Recovered/Resolved]
  - Sinusitis [Unknown]
  - Blood alkaline phosphatase increased [Recovered/Resolved]
  - Rhinitis [Recovered/Resolved]
  - Cerebral cyst [Unknown]
  - Aspartate aminotransferase increased [Recovered/Resolved]

NARRATIVE: CASE EVENT DATE: 20120507
